FAERS Safety Report 24365336 (Version 2)
Quarter: 2024Q4

REPORT INFORMATION
  Report Type: Report from Study
  Country: US (occurrence: US)
  Receive Date: 20240926
  Receipt Date: 20241212
  Transmission Date: 20250114
  Serious: Yes (Hospitalization, Other)
  Sender: EMD SERONO INC
  Company Number: US-Merck Healthcare KGaA-2024050091

PATIENT
  Sex: Female

DRUGS (3)
  1. MAVENCLAD [Suspect]
     Active Substance: CLADRIBINE
     Indication: Multiple sclerosis
     Dosage: YEAR ONE MONTH ONE THERAPY
  2. MAVENCLAD [Suspect]
     Active Substance: CLADRIBINE
     Dosage: YEAR ONE MONTH TWO THERAPY
  3. VITAMIN B12 [Concomitant]
     Active Substance: CYANOCOBALAMIN
     Indication: Product used for unknown indication
     Dosage: SHOTS

REACTIONS (8)
  - Osteonecrosis [Recovered/Resolved]
  - Multiple sclerosis [Unknown]
  - Procedural haemorrhage [Unknown]
  - Dermatitis contact [Unknown]
  - Arthritis infective [Recovered/Resolved]
  - Post procedural infection [Recovered/Resolved]
  - Orthostatic hypotension [Recovered/Resolved]
  - Fatigue [Not Recovered/Not Resolved]
